FAERS Safety Report 6021272-6 (Version None)
Quarter: 2008Q4

REPORT INFORMATION
  Report Type: 
  Country: None (occurrence: None)
  Receive Date: 20081222
  Receipt Date: 20081209
  Transmission Date: 20090506
  Serious: Yes (Other)
  Sender: FDA-Public Use
  Company Number: IPS_01389_2008

PATIENT
  Sex: Male

DRUGS (15)
  1. APO-GO (APO-GO - APOMORPHINE HYDROCHLORIDE) (NOT SPECIFIED) [Suspect]
     Indication: PARKINSON'S DISEASE
     Dosage: (5 MG OR 10 MG PER HOUR DURING THE DAY, FOR 0 MONTHS SUBCUTANEOUS)
     Route: 058
     Dates: start: 20081117, end: 20080101
  2. CO-CARELDOPA [Concomitant]
  3. BISOPROLOL FUMARATE [Concomitant]
  4. SIMVASTATIN [Concomitant]
  5. ISOSORBIDE MONONITRATE [Concomitant]
  6. ZOPICLONE [Concomitant]
  7. ROTIGOTINE [Concomitant]
  8. MIRTAZAPINE [Concomitant]
  9. SINEMET CR [Concomitant]
  10. RASAGILINE [Concomitant]
  11. PRAMIPEXOLE DIHYDROCHLORIDE [Concomitant]
  12. PARACETAMOL [Concomitant]
  13. RAMIPRIL [Concomitant]
  14. ASPIRIN [Concomitant]
  15. NICORANDIL [Concomitant]

REACTIONS (5)
  - INJECTION SITE HAEMORRHAGE [None]
  - INJECTION SITE SWELLING [None]
  - PAIN OF SKIN [None]
  - RASH ERYTHEMATOUS [None]
  - RASH PRURITIC [None]
